FAERS Safety Report 9696926 (Version 2)
Quarter: 2013Q4

REPORT INFORMATION
  Report Type: Spontaneous
  Country: US (occurrence: US)
  Receive Date: 20131119
  Receipt Date: 20131119
  Transmission Date: 20140711
  Serious: No
  Sender: FDA-Public Use
  Company Number: US-GILEAD-2007-0013916

PATIENT
  Sex: Female

DRUGS (7)
  1. LETAIRIS [Suspect]
     Indication: PULMONARY ARTERIAL HYPERTENSION
     Route: 048
  2. EPOPROSTENOL [Concomitant]
     Route: 042
  3. SILDENAFIL [Concomitant]
     Route: 048
  4. DIGOXIN [Concomitant]
  5. COUMADIN [Concomitant]
  6. PTU [Concomitant]
     Indication: BASEDOW^S DISEASE
     Route: 048
  7. LASIX [Concomitant]
     Route: 048

REACTIONS (2)
  - Oedema peripheral [Recovered/Resolved]
  - Nasopharyngitis [Recovered/Resolved]
